FAERS Safety Report 7015441-6 (Version None)
Quarter: 2010Q3

REPORT INFORMATION
  Report Type: 
  Country: None (occurrence: None)
  Receive Date: 20100927
  Receipt Date: 20100915
  Transmission Date: 20110219
  Serious: Yes (Hospitalization, Other)
  Sender: FDA-Public Use
  Company Number: US-ELI_LILLY_AND_COMPANY-US201007003671

PATIENT
  Sex: Female

DRUGS (5)
  1. FORTEO [Suspect]
     Indication: SENILE OSTEOPOROSIS
     Dosage: 20 UG, DAILY (1/D)
  2. CALCIUM WITH VITAMIN D [Concomitant]
     Dosage: 600 MG/200, DAILY (1/D)
  3. PRAVACHOL [Concomitant]
  4. PEPCID [Concomitant]
     Dosage: UNK, 2/D
  5. DARVOCET [Concomitant]
     Dosage: UNK, AS NEEDED

REACTIONS (2)
  - FALL [None]
  - HIP FRACTURE [None]
